FAERS Safety Report 19187202 (Version 1)
Quarter: 2021Q2

REPORT INFORMATION
  Report Type: Spontaneous
  Country: CA (occurrence: CA)
  Receive Date: 20210428
  Receipt Date: 20210428
  Transmission Date: 20210717
  Serious: Yes (Other)
  Sender: FDA-Public Use
  Company Number: CA-JNJFOC-20210448047

PATIENT
  Age: 29 Year
  Sex: Male

DRUGS (4)
  1. ASHWAGANDHA [WITHANIA SOMNIFERA] [Concomitant]
     Active Substance: HERBALS
     Route: 065
  2. PREDNISONE. [Concomitant]
     Active Substance: PREDNISONE
     Route: 065
  3. INFLIXIMAB, RECOMBINANT [Suspect]
     Active Substance: INFLIXIMAB
     Indication: COLITIS ULCERATIVE
     Route: 042
  4. CEFPODOXIME PROXETIL. [Concomitant]
     Active Substance: CEFPODOXIME PROXETIL
     Route: 065

REACTIONS (4)
  - Malaise [Unknown]
  - Pharyngitis bacterial [Unknown]
  - Oropharyngeal pain [Unknown]
  - Tonsillar disorder [Unknown]
